FAERS Safety Report 12305244 (Version 2)
Quarter: 2016Q2

REPORT INFORMATION
  Report Type: Report from Study
  Country: US (occurrence: US)
  Receive Date: 20160426
  Receipt Date: 20160516
  Transmission Date: 20160815
  Serious: Yes (Other)
  Sender: FDA-Public Use
  Company Number: US-BEH-2016061561

PATIENT
  Age: 6 Year
  Sex: Male
  Weight: 32 kg

DRUGS (17)
  1. TYLENOL [Concomitant]
     Active Substance: ACETAMINOPHEN
     Indication: PREMEDICATION
     Dates: start: 20160413
  2. HIZENTRA [Suspect]
     Active Substance: HUMAN IMMUNOGLOBULIN G
     Indication: SELECTIVE IGG SUBCLASS DEFICIENCY
     Dosage: 4 SITES
     Route: 058
     Dates: start: 20160413, end: 20160413
  3. PREVACID [Concomitant]
     Active Substance: LANSOPRAZOLE
  4. AZITHROMYCIN ANHYDROUS. [Concomitant]
     Active Substance: AZITHROMYCIN ANHYDROUS
  5. POLYETHYLENE GLYCOL [Concomitant]
     Active Substance: POLYETHYLENE GLYCOLS
  6. IBUPROFEN. [Concomitant]
     Active Substance: IBUPROFEN
  7. ANTIHISTAMINES [Concomitant]
     Active Substance: ANTIHISTAMINES NOS
  8. FERROUS SULFATE. [Concomitant]
     Active Substance: FERROUS SULFATE
  9. SYMBICORT [Concomitant]
     Active Substance: BUDESONIDE\FORMOTEROL FUMARATE DIHYDRATE
  10. XOPENEX [Concomitant]
     Active Substance: LEVALBUTEROL HYDROCHLORIDE
  11. CETIRI-D [Concomitant]
  12. MUPIROCIN. [Concomitant]
     Active Substance: MUPIROCIN
  13. SINGULAIR [Concomitant]
     Active Substance: MONTELUKAST SODIUM
  14. HIZENTRA [Suspect]
     Active Substance: HUMAN IMMUNOGLOBULIN G
     Route: 058
     Dates: start: 20160329
  15. FLONASE [Concomitant]
     Active Substance: FLUTICASONE PROPIONATE
  16. BENADRYL [Concomitant]
     Active Substance: DIPHENHYDRAMINE HYDROCHLORIDE
     Indication: PREMEDICATION
     Route: 048
     Dates: start: 20160413
  17. PREDNISOLONE. [Concomitant]
     Active Substance: PREDNISOLONE
     Indication: PREMEDICATION
     Dates: start: 20160413

REACTIONS (10)
  - Vomiting [Unknown]
  - Loss of consciousness [Unknown]
  - Restlessness [Unknown]
  - Headache [Unknown]
  - Paraesthesia [Unknown]
  - Pain [Unknown]
  - Crying [Unknown]
  - Paraesthesia [Unknown]
  - Pruritus generalised [Unknown]
  - Nausea [Unknown]

NARRATIVE: CASE EVENT DATE: 20160414
